FAERS Safety Report 6701673-0 (Version None)
Quarter: 2010Q2

REPORT INFORMATION
  Report Type: 
  Country: None (occurrence: None)
  Receive Date: 20100429
  Receipt Date: 20100416
  Transmission Date: 20101027
  Serious: Yes (Other)
  Sender: FDA-Public Use
  Company Number: US-SANOFI-AVENTIS-2009SA007625

PATIENT
  Age: 37 Year
  Sex: Female

DRUGS (4)
  1. MULTAQ [Suspect]
     Route: 048
     Dates: start: 20090910, end: 20090918
  2. FUROSEMIDE [Suspect]
     Route: 065
     Dates: end: 20090901
  3. METOPROLOL TARTRATE [Concomitant]
  4. CALCIUM CHANNEL BLOCKERS [Concomitant]

REACTIONS (9)
  - ACUTE PULMONARY OEDEMA [None]
  - CARDIAC FAILURE CONGESTIVE [None]
  - COUGH [None]
  - DEHYDRATION [None]
  - DYSPNOEA [None]
  - OEDEMA PERIPHERAL [None]
  - RENAL IMPAIRMENT [None]
  - WEIGHT INCREASED [None]
  - WHEEZING [None]
